FAERS Safety Report 10609730 (Version 2)
Quarter: 2014Q4

REPORT INFORMATION
  Report Type: Spontaneous
  Country: CH (occurrence: None)
  Receive Date: 20141124
  Receipt Date: 20141211
  Transmission Date: 20150529
  Serious: Yes (Other)
  Sender: FDA-Public Use
  Company Number: 20140738

PATIENT
  Age: 18 Year
  Sex: Female

DRUGS (2)
  1. LEONA HEXAL (ETHINYLESTRADIOL, LEVONORGESTREL) [Concomitant]
  2. FERINJECT [Suspect]
     Active Substance: FERRIC CARBOXYMALTOSE
     Indication: IRON DEFICIENCY
     Dosage: 1 IN 1 TOTAL
     Route: 041
     Dates: start: 20141029, end: 20141029

REACTIONS (6)
  - Eye movement disorder [None]
  - Loss of consciousness [None]
  - Muscle spasms [None]
  - Epilepsy [None]
  - Cerebral disorder [None]
  - Postictal state [None]

NARRATIVE: CASE EVENT DATE: 20141029
